FAERS Safety Report 24540797 (Version 1)
Quarter: 2024Q4

REPORT INFORMATION
  Report Type: Spontaneous
  Country: US (occurrence: None)
  Receive Date: 20241023
  Receipt Date: 20241023
  Transmission Date: 20250115
  Serious: Yes (unspecified)
  Sender: Public
  Company Number: None

PATIENT
  Age: 69 Year
  Sex: Female
  Weight: 70.31 kg

DRUGS (2)
  1. MONTELUKAST [Suspect]
     Active Substance: MONTELUKAST
     Indication: Rhinitis allergic
     Dosage: FREQUENCY : AT BEDTIME;?
     Route: 048
     Dates: start: 20240903, end: 20240917
  2. MONTELUKAST [Suspect]
     Active Substance: MONTELUKAST
     Indication: Sinusitis

REACTIONS (6)
  - Panic attack [None]
  - Abnormal dreams [None]
  - Therapy cessation [None]
  - Sleep disorder [None]
  - Anxiety [None]
  - Middle insomnia [None]

NARRATIVE: CASE EVENT DATE: 20240909
